FAERS Safety Report 5214143-6 (Version None)
Quarter: 2007Q1

REPORT INFORMATION
  Report Type: 
  Country: None (occurrence: None)
  Receive Date: 20070122
  Receipt Date: 20070111
  Transmission Date: 20070707
  Serious: Yes (Hospitalization)
  Sender: FDA-Public Use
  Company Number: PHHO2006IT08760

PATIENT
  Age: 39 Year
  Sex: Female
  Weight: 64 kg

DRUGS (2)
  1. NEORAL [Suspect]
     Indication: RENAL TRANSPLANT
     Dosage: 105 MG, BID
     Route: 048
  2. CERTICAN [Suspect]
     Indication: RENAL TRANSPLANT
     Dosage: 1.5 MG, BID
     Route: 048
     Dates: start: 20060216

REACTIONS (7)
  - ANAEMIA [None]
  - BLOOD CHOLESTEROL INCREASED [None]
  - BLOOD CREATININE INCREASED [None]
  - BLOOD TRIGLYCERIDES INCREASED [None]
  - HYPERCREATININAEMIA [None]
  - METABOLIC DISORDER [None]
  - RENAL IMPAIRMENT [None]
